FAERS Safety Report 17415140 (Version 1)
Quarter: 2020Q1

REPORT INFORMATION
  Report Type: Spontaneous
  Country: US (occurrence: US)
  Receive Date: 20200213
  Receipt Date: 20200213
  Transmission Date: 20200409
  Serious: Yes (Hospitalization)
  Sender: FDA-Public Use
  Company Number: US-BAUSCH-BL-2020-004062

PATIENT
  Age: 56 Year
  Sex: Male

DRUGS (4)
  1. BUPROPION. [Suspect]
     Active Substance: BUPROPION
     Indication: SMOKING CESSATION THERAPY
     Route: 065
  2. METOPROLOL. [Interacting]
     Active Substance: METOPROLOL
     Dosage: RE-STARTED
     Route: 065
  3. METOPROLOL. [Interacting]
     Active Substance: METOPROLOL
     Indication: HYPERTENSION
     Dosage: STABLE DOSES FOR GREATER THAN 1 YEAR
     Route: 065
  4. DILTIAZEM. [Concomitant]
     Active Substance: DILTIAZEM
     Indication: HYPERTENSION
     Dosage: STABLE DOSES FOR GREATER THAN 1 YEAR

REACTIONS (2)
  - Drug interaction [Unknown]
  - Sinus bradycardia [Recovered/Resolved]
